FAERS Safety Report 11906895 (Version 4)
Quarter: 2016Q2

REPORT INFORMATION
  Report Type: Report from Study
  Country: MX (occurrence: MX)
  Receive Date: 20160111
  Receipt Date: 20160412
  Transmission Date: 20160815
  Serious: Yes (Hospitalization, Other)
  Sender: FDA-Public Use
  Company Number: MX-PFIZER INC-2016003266

PATIENT
  Age: 45 Year
  Sex: Male
  Weight: 131.3 kg

DRUGS (6)
  1. PARACETAMOL [Concomitant]
     Active Substance: ACETAMINOPHEN
     Indication: PSORIATIC ARTHROPATHY
     Dosage: 500 MG, 3X/DAY
     Route: 048
     Dates: start: 20131015
  2. INDOMETACINA [Concomitant]
     Indication: PSORIATIC ARTHROPATHY
     Dosage: 25 MG, 2X/DAY
     Route: 048
     Dates: start: 20140517
  3. FOLIC ACID. [Concomitant]
     Active Substance: FOLIC ACID
     Indication: PROPHYLAXIS
     Dosage: 10 MG, WEEKLY
     Route: 048
     Dates: start: 20140315
  4. MICARDIS [Concomitant]
     Active Substance: TELMISARTAN
     Indication: HYPERTENSION
     Dosage: 80 MG, 1X/DAY
     Route: 048
     Dates: start: 20080615
  5. METHOTREXATE (METHOTREXATE SODIUM) [Concomitant]
     Active Substance: METHOTREXATE SODIUM
     Indication: PSORIATIC ARTHROPATHY
     Dosage: 15 MG, WEEKLY
     Route: 048
     Dates: start: 20140315
  6. TOFACITINIB CITRATE [Suspect]
     Active Substance: TOFACITINIB CITRATE
     Indication: PSORIATIC ARTHROPATHY
     Dosage: 5 MG, 2X/DAY
     Route: 048
     Dates: start: 20151123, end: 20151225

REACTIONS (1)
  - Renal cell carcinoma [Recovered/Resolved]

NARRATIVE: CASE EVENT DATE: 20151225
